FAERS Safety Report 7778036-2 (Version None)
Quarter: 2011Q3

REPORT INFORMATION
  Report Type: 
  Country: None (occurrence: None)
  Receive Date: 20110926
  Receipt Date: 20110920
  Transmission Date: 20111222
  Serious: Yes (Death, Life-Threatening, Other)
  Sender: FDA-Public Use
  Company Number: JP-BAYER-200913532BYL

PATIENT
  Age: 75 Year
  Sex: Male
  Weight: 66.7 kg

DRUGS (10)
  1. NEXAVAR [Suspect]
     Indication: HEPATIC NEOPLASM MALIGNANT
     Route: 048
     Dates: start: 20090731, end: 20090810
  2. NEXAVAR [Suspect]
     Dosage: 400 MG (DAILY DOSE), , ORAL
     Route: 048
     Dates: start: 20090810, end: 20090906
  3. TAMSULOSIN HCL [Concomitant]
     Dosage: SINCE BEFORE ADMINISTRATION
     Route: 048
  4. FAMOTIDINE [Concomitant]
     Route: 048
     Dates: start: 20091002
  5. KETOPROFEN [Concomitant]
     Dosage: SINCE BEFORE ADMINISTRATION
     Route: 062
  6. MUCOSOLVAN [Concomitant]
     Dosage: 45 MG (DAILY DOSE), , ORAL
     Route: 048
     Dates: start: 20090824
  7. URSO 250 [Concomitant]
     Dosage: SINCE BEFORE ADMINISTRATION
     Route: 048
  8. NEXAVAR [Suspect]
     Route: 048
     Dates: start: 20090907, end: 20090920
  9. ADALAT [Concomitant]
     Dosage: SINCE BEFORE ADMINISTRATION
     Route: 048
  10. DEXTROMETHORPHAN HYDROBROMIDE [Concomitant]
     Dosage: 45 MG (DAILY DOSE), , ORAL
     Route: 048
     Dates: start: 20090824

REACTIONS (5)
  - OESOPHAGEAL VARICES HAEMORRHAGE [None]
  - ASCITES [None]
  - HEPATIC FUNCTION ABNORMAL [None]
  - HEPATIC NEOPLASM MALIGNANT [None]
  - DIARRHOEA [None]
